FAERS Safety Report 20700088 (Version 1)
Quarter: 2022Q2

REPORT INFORMATION
  Report Type: Spontaneous
  Country: CR (occurrence: None)
  Receive Date: 20220410
  Receipt Date: 20220410
  Transmission Date: 20220720
  Serious: Yes (Life-Threatening, Other)
  Sender: FDA-Public Use
  Company Number: None

PATIENT
  Age: 28 Year
  Sex: Male
  Weight: 64 kg

DRUGS (4)
  1. HALOPERIDOL [Suspect]
     Active Substance: HALOPERIDOL
     Indication: Mental disorder
     Dosage: OTHER QUANTITY : 2 TABLET(S)?FREQUENCY : TWICE A DAY?OTHER ROUTE : TABLETS AND INJECTION?
     Route: 050
     Dates: start: 20220403, end: 20220405
  2. FLUOXETINE [Concomitant]
     Active Substance: FLUOXETINE HYDROCHLORIDE
  3. BIPERIDEN [Concomitant]
     Active Substance: BIPERIDEN
  4. CARBAMAZEPINE [Concomitant]
     Active Substance: CARBAMAZEPINE

REACTIONS (5)
  - Mental disorder [None]
  - Joint dislocation [None]
  - Tongue disorder [None]
  - Dyspnoea [None]
  - Muscle rigidity [None]

NARRATIVE: CASE EVENT DATE: 20220405
